FAERS Safety Report 7964718-6 (Version None)
Quarter: 2011Q4

REPORT INFORMATION
  Report Type: 
  Country: None (occurrence: None)
  Receive Date: 20111208
  Receipt Date: 20111201
  Transmission Date: 20120403
  Serious: Yes (Life-Threatening)
  Sender: FDA-Public Use
  Company Number: US-ROXANE LABORATORIES, INC.-2011-RO-01730RO

PATIENT
  Age: 33 Year
  Sex: Female

DRUGS (2)
  1. LITHIUM CARBONATE [Suspect]
     Dosage: 3600 MG
     Route: 048
  2. LITHIUM CARBONATE [Suspect]
     Dosage: 4500 MG
     Route: 048

REACTIONS (2)
  - OVERDOSE [None]
  - TOXICITY TO VARIOUS AGENTS [None]
